FAERS Safety Report 13564614 (Version 3)
Quarter: 2017Q2

REPORT INFORMATION
  Report Type: Spontaneous
  Country: US (occurrence: US)
  Receive Date: 20170519
  Receipt Date: 20170619
  Transmission Date: 20170830
  Serious: No
  Sender: FDA-Public Use
  Company Number: US-BEH-2017080494

PATIENT
  Age: 56 Year
  Sex: Female

DRUGS (1)
  1. HIZENTRA [Suspect]
     Active Substance: HUMAN IMMUNOGLOBULIN G
     Indication: IMMUNODEFICIENCY COMMON VARIABLE
     Dosage: 8 G (40ML), QW
     Route: 058
     Dates: start: 20141014

REACTIONS (5)
  - Sinusitis [Unknown]
  - Injection site erythema [Unknown]
  - Injection site swelling [Unknown]
  - Viral upper respiratory tract infection [Recovering/Resolving]
  - Bronchitis [Unknown]

NARRATIVE: CASE EVENT DATE: 20170505
